FAERS Safety Report 7200204-9 (Version None)
Quarter: 2010Q4

REPORT INFORMATION
  Report Type: 
  Country: None (occurrence: None)
  Receive Date: 20101228
  Receipt Date: 20101217
  Transmission Date: 20110411
  Serious: Yes (Other)
  Sender: FDA-Public Use
  Company Number: DE-ALEXION-A201001660

PATIENT
  Sex: Female

DRUGS (6)
  1. SOLIRIS [Suspect]
     Indication: PAROXYSMAL NOCTURNAL HAEMOGLOBINURIA
     Dosage: 600 MG, QW
     Route: 042
     Dates: start: 20101212
  2. MERIEUX FLU VACCINE [Concomitant]
     Indication: IMMUNISATION
     Dosage: UNK
     Dates: start: 20100114, end: 20100114
  3. PREDNISOLON                        /00016201/ [Concomitant]
     Indication: PAROXYSMAL NOCTURNAL HAEMOGLOBINURIA
     Dosage: 5 MG, UNK
     Route: 048
  4. LEVOTHYROXINE SODIUM [Concomitant]
     Indication: HYPOTHYROIDISM
     Dosage: 150 UG, UNK
     Route: 048
  5. CALCITROL                          /00508501/ [Concomitant]
     Indication: HYPOPARATHYROIDISM
     Dosage: 0.25 MG, UNK
     Route: 048
  6. CALCIUM [Concomitant]
     Indication: HYPOPARATHYROIDISM
     Dosage: 600 MG, UNK
     Route: 048

REACTIONS (5)
  - ASTHENIA [None]
  - HEADACHE [None]
  - HYPERHIDROSIS [None]
  - PALLOR [None]
  - SPEECH DISORDER [None]
